FAERS Safety Report 10178629 (Version 2)
Quarter: 2014Q2

REPORT INFORMATION
  Report Type: Report from Study
  Country: US (occurrence: US)
  Receive Date: 20140519
  Receipt Date: 20140519
  Transmission Date: 20141212
  Serious: Yes (Other)
  Sender: FDA-Public Use
  Company Number: US-JNJFOC-20140206683

PATIENT
  Age: 53 Year
  Sex: Female
  Weight: 53.07 kg

DRUGS (17)
  1. REMICADE [Suspect]
     Indication: PROCTITIS ULCERATIVE
     Route: 042
  2. REMICADE [Suspect]
     Indication: PROCTITIS ULCERATIVE
     Route: 042
     Dates: start: 201106
  3. REMICADE [Suspect]
     Indication: PROCTITIS ULCERATIVE
     Route: 042
     Dates: start: 20121120, end: 20140207
  4. REMICADE [Suspect]
     Indication: PSORIASIS
     Route: 042
     Dates: start: 201106
  5. REMICADE [Suspect]
     Indication: PSORIASIS
     Route: 042
     Dates: start: 20121120, end: 20140207
  6. REMICADE [Suspect]
     Indication: PSORIASIS
     Route: 042
  7. REMICADE [Suspect]
     Indication: ARTHRITIS REACTIVE
     Route: 042
     Dates: start: 20121120, end: 20140207
  8. REMICADE [Suspect]
     Indication: ARTHRITIS REACTIVE
     Route: 042
     Dates: start: 201106
  9. REMICADE [Suspect]
     Indication: ARTHRITIS REACTIVE
     Route: 042
  10. SPIRONOLACTON [Concomitant]
     Indication: SWELLING
     Dosage: PAST 10 YEARS
     Route: 065
  11. VITAMIN D [Concomitant]
     Dosage: PAST 10 YEARS
     Route: 065
  12. FISH OIL [Concomitant]
     Dosage: PAST 10 YEARS
     Route: 065
  13. PROBIOTICS [Concomitant]
     Dosage: PAST 10 YEARS
     Route: 065
  14. CALCIUM [Concomitant]
     Dosage: PAST 10 YEARS
     Route: 065
  15. MAGNESIUM [Concomitant]
     Dosage: PAST 10 YEARS
     Route: 065
  16. CANASA SUPPOSITORIES [Concomitant]
     Indication: PROCTITIS ULCERATIVE
     Route: 065
  17. HYOSCINE BUTYLBROMIDE [Concomitant]
     Indication: IRRITABLE BOWEL SYNDROME
     Dosage: 10-70 MG TID
     Route: 065

REACTIONS (7)
  - Arthritis reactive [Not Recovered/Not Resolved]
  - Psoriatic arthropathy [Unknown]
  - Therapeutic response decreased [Unknown]
  - Rosacea [Unknown]
  - Drug specific antibody present [Unknown]
  - Nausea [Recovering/Resolving]
  - Psoriasis [Recovered/Resolved]
